FAERS Safety Report 4798078-9 (Version None)
Quarter: 2005Q4

REPORT INFORMATION
  Report Type: 
  Country: None (occurrence: None)
  Receive Date: 20051011
  Receipt Date: 20051011
  Transmission Date: 20060501
  Serious: No
  Sender: FDA-Public Use
  Company Number: None

PATIENT
  Age: 51 Year
  Sex: Female

DRUGS (1)
  1. TIZANIDINE 4MG R+S PHARMA [Suspect]
     Indication: MUSCLE SPASMS
     Dosage: 4MG TID PO
     Route: 048
     Dates: start: 20050921, end: 20051005

REACTIONS (2)
  - DRUG EFFECT DECREASED [None]
  - PHARMACEUTICAL PRODUCT COMPLAINT [None]
